FAERS Safety Report 4705343-X (Version None)
Quarter: 2005Q2

REPORT INFORMATION
  Report Type: 
  Country: None (occurrence: None)
  Receive Date: 20050629
  Receipt Date: 20050617
  Transmission Date: 20051028
  Serious: Yes (Life-Threatening)
  Sender: FDA-Public Use
  Company Number: GXKR2005FR01252

PATIENT
  Age: 33 Year
  Sex: Male

DRUGS (3)
  1. IBUPROFEN [Suspect]
     Indication: ACUTE TONSILLITIS
     Dosage: ORAL
     Route: 048
     Dates: start: 20050506
  2. AMOXICILLIN [Suspect]
     Indication: ACUTE TONSILLITIS
     Dosage: 1G
     Dates: start: 20050506
  3. HEXASPRAY(BICLOTYMOL) [Suspect]
     Indication: ACUTE TONSILLITIS
     Dosage: TOPICAL
     Route: 061
     Dates: start: 20050506

REACTIONS (7)
  - BURNING SENSATION [None]
  - CONJUNCTIVITIS [None]
  - DYSPHAGIA [None]
  - FACE OEDEMA [None]
  - PHARYNGEAL OEDEMA [None]
  - RASH [None]
  - SPEECH DISORDER [None]
